FAERS Safety Report 8560329-2 (Version None)
Quarter: 2012Q3

REPORT INFORMATION
  Report Type: 
  Country: None (occurrence: None)
  Receive Date: 20120802
  Receipt Date: 20120720
  Transmission Date: 20120928
  Serious: Yes (Hospitalization, Other)
  Sender: FDA-Public Use
  Company Number: US-ELI_LILLY_AND_COMPANY-US201207006332

PATIENT
  Age: 78 Year
  Sex: Male

DRUGS (8)
  1. TYLENOL                                 /SCH/ [Concomitant]
  2. HYDRALAZINE HCL [Concomitant]
  3. PANTOPRAZOLE [Concomitant]
  4. ASPIRIN [Concomitant]
  5. CYMBALTA [Suspect]
     Indication: COGNITIVE DISORDER
     Dosage: UNK
  6. LABETALOL HCL [Concomitant]
  7. PROPOFOL [Concomitant]
  8. DILAUDID [Concomitant]

REACTIONS (8)
  - DRUG WITHDRAWAL SYNDROME [None]
  - OFF LABEL USE [None]
  - GASTROINTESTINAL TUBE INSERTION [None]
  - HYPERTENSION [None]
  - ATRIAL FIBRILLATION [None]
  - AGITATION [None]
  - COGNITIVE DISORDER [None]
  - CONFUSIONAL STATE [None]
